FAERS Safety Report 22655238 (Version 2)
Quarter: 2023Q2

REPORT INFORMATION
  Report Type: Report from Study
  Country: US (occurrence: US)
  Receive Date: 20230629
  Receipt Date: 20230630
  Transmission Date: 20230722
  Serious: No
  Sender: FDA-Public Use
  Company Number: US-002147023-NVSC2023US148295

PATIENT
  Sex: Male

DRUGS (2)
  1. COSENTYX [Suspect]
     Active Substance: SECUKINUMAB
     Indication: Product used for unknown indication
     Dosage: UNK
     Route: 065
  2. CALCIPOTRIENE [Suspect]
     Active Substance: CALCIPOTRIENE
     Indication: Psoriasis
     Dosage: UNK
     Route: 065

REACTIONS (9)
  - Muscular weakness [Unknown]
  - Emotional distress [Unknown]
  - Lentigo [Unknown]
  - Melanocytic naevus [Unknown]
  - Psoriasis [Unknown]
  - Pain [Unknown]
  - Skin fissures [Unknown]
  - Pruritus [Unknown]
  - Drug ineffective [Unknown]
